FAERS Safety Report 8861363 (Version 5)
Quarter: 2013Q1

REPORT INFORMATION
  Report Type: Spontaneous
  Country: US (occurrence: None)
  Receive Date: 20121023
  Receipt Date: 20130214
  Transmission Date: 20140127
  Serious: Yes (Hospitalization)
  Sender: FDA-Public Use
  Company Number: US-JNJFOC-20121007311

PATIENT
  Age: 76 Year
  Sex: Male
  Weight: 148 kg

DRUGS (2)
  1. DECITABINE (DECITABINE) LYOPHILIZED POWDER [Suspect]
     Indication: ACUTE MYELOID LEUKAEMIA
     Route: 042
     Dates: start: 20120927, end: 20121007
  2. BORTEZOMIB [Suspect]
     Indication: ACUTE MYELOID LEUKAEMIA
     Route: 058
     Dates: start: 20120927, end: 20121007

REACTIONS (16)
  - Lung infection [None]
  - Lobar pneumonia [None]
  - Pleural effusion [None]
  - Condition aggravated [None]
  - Failure to thrive [None]
  - Asthenia [None]
  - Generalised oedema [None]
  - Nephrotic syndrome [None]
  - Oedema peripheral [None]
  - Loss of consciousness [None]
  - Refusal of treatment by patient [None]
  - Syncope [None]
  - Fall [None]
  - Ileus [None]
  - Blood pressure orthostatic [None]
  - Pneumonia [None]
